FAERS Safety Report 5570041-X (Version None)
Quarter: 2007Q4

REPORT INFORMATION
  Report Type: 
  Country: None (occurrence: None)
  Receive Date: 20071220
  Receipt Date: 20071210
  Transmission Date: 20080405
  Serious: Yes (Other)
  Sender: FDA-Public Use
  Company Number: US-PFIZER INC-2007078967

PATIENT
  Sex: Female

DRUGS (2)
  1. ALDACTONE [Suspect]
     Indication: BLOOD PRESSURE
     Dosage: TEXT:1/2 DOSE FORM
     Route: 048
  2. SPIRONOLACTONE [Suspect]
     Indication: BLOOD PRESSURE

REACTIONS (2)
  - EYE SWELLING [None]
  - PRURITUS [None]
